FAERS Safety Report 6583130-8 (Version None)
Quarter: 2010Q1

REPORT INFORMATION
  Report Type: 
  Country: None (occurrence: None)
  Receive Date: 20100216
  Receipt Date: 20100208
  Transmission Date: 20100710
  Serious: Yes (Other)
  Sender: FDA-Public Use
  Company Number: ES-ROCHE-684393

PATIENT
  Age: 39 Year
  Sex: Male

DRUGS (6)
  1. TAMIFLU [Suspect]
     Indication: ANTIVIRAL PROPHYLAXIS
     Route: 048
     Dates: start: 20091108, end: 20091109
  2. TAMIFLU [Suspect]
     Dosage: DOSE INCREASED
     Route: 048
     Dates: start: 20091109, end: 20091111
  3. AZITHROMYCIN [Suspect]
     Indication: ANTIBIOTIC PROPHYLAXIS
     Dosage: DRUG REPORTED: AZITROMICINE
     Route: 042
     Dates: start: 20091109, end: 20091115
  4. CEFOTAXIME [Suspect]
     Indication: ANTIBIOTIC PROPHYLAXIS
     Dosage: DRUG REPORTED: CEPHOTAXIME
     Route: 042
     Dates: start: 20091109, end: 20091116
  5. ENOXAPARIN SODIUM [Concomitant]
     Route: 058
     Dates: start: 20091109, end: 20091109
  6. PANTOPRAZOLE [Concomitant]
     Route: 042
     Dates: start: 20091109

REACTIONS (1)
  - CHOLESTASIS [None]
